FAERS Safety Report 5925306-6 (Version None)
Quarter: 2008Q4

REPORT INFORMATION
  Report Type: 
  Country: None (occurrence: None)
  Receive Date: 20081020
  Receipt Date: 20081020
  Transmission Date: 20090506
  Serious: Yes (Hospitalization)
  Sender: FDA-Public Use
  Company Number: None

PATIENT
  Age: 74 Year
  Sex: Female

DRUGS (1)
  1. LEVOFLOXACIN [Suspect]

REACTIONS (4)
  - ANOXIA [None]
  - CONVULSION [None]
  - ENCEPHALOPATHY [None]
  - STATUS EPILEPTICUS [None]
